FAERS Safety Report 9260617 (Version 2)
Quarter: 2013Q4

REPORT INFORMATION
  Report Type: Spontaneous
  Country: GB (occurrence: GB)
  Receive Date: 20130429
  Receipt Date: 20131218
  Transmission Date: 20140711
  Serious: Yes (Hospitalization, Disabling)
  Sender: FDA-Public Use
  Company Number: GB-BRISTOL-MYERS SQUIBB COMPANY-18815670

PATIENT
  Sex: Male

DRUGS (3)
  1. KENALOG INJ [Suspect]
     Indication: ECZEMA
     Route: 030
     Dates: start: 20121017
  2. SALBUTAMOL [Concomitant]
     Indication: ASTHMA
     Route: 055
  3. CETRIZINE [Concomitant]
     Indication: ECZEMA
     Route: 048

REACTIONS (2)
  - Retinal vein occlusion [Not Recovered/Not Resolved]
  - Blindness [Not Recovered/Not Resolved]
